FAERS Safety Report 10467858 (Version 6)
Quarter: 2016Q1

REPORT INFORMATION
  Report Type: Report from Study
  Country: FR (occurrence: FR)
  Receive Date: 20140922
  Receipt Date: 20160203
  Transmission Date: 20160525
  Serious: Yes (Hospitalization)
  Sender: FDA-Public Use
  Company Number: PHHY2014FR122518

PATIENT
  Age: 48 Year
  Sex: Female
  Weight: 71 kg

DRUGS (1)
  1. ILARIS [Suspect]
     Active Substance: CANAKINUMAB
     Indication: MUCKLE-WELLS SYNDROME
     Dosage: 150 MG, EVERY 6 WEEKS
     Route: 058
     Dates: start: 20080407

REACTIONS (7)
  - Fibromyalgia [Not Recovered/Not Resolved]
  - Urinary tract infection [Not Recovered/Not Resolved]
  - Escherichia pyelonephritis [Recovering/Resolving]
  - Urinary incontinence [Not Recovered/Not Resolved]
  - Pyelonephritis [Recovered/Resolved]
  - Incontinence [Unknown]
  - Back pain [Unknown]

NARRATIVE: CASE EVENT DATE: 20120301
